FAERS Safety Report 16693328 (Version 1)
Quarter: 2019Q3

REPORT INFORMATION
  Report Type: Spontaneous
  Country: US (occurrence: US)
  Receive Date: 20190812
  Receipt Date: 20190812
  Transmission Date: 20191004
  Serious: Yes (Other)
  Sender: FDA-Public Use
  Company Number: US-PFIZER INC-2019335054

PATIENT
  Age: 86 Year
  Sex: Female
  Weight: 104.3 kg

DRUGS (1)
  1. THERMACARE ULTRA [Suspect]
     Active Substance: CAMPHOR (SYNTHETIC)\CAPSICUM OLEORESIN\MENTHOL\METHYL SALICYLATE
     Indication: ARTHRITIS
     Dosage: UNK
     Route: 061
     Dates: start: 20190731

REACTIONS (1)
  - Prothrombin time shortened [Unknown]

NARRATIVE: CASE EVENT DATE: 20190731
